FAERS Safety Report 6525468-6 (Version None)
Quarter: 2010Q1

REPORT INFORMATION
  Report Type: 
  Country: None (occurrence: None)
  Receive Date: 20100104
  Receipt Date: 20091223
  Transmission Date: 20100710
  Serious: Yes (Hospitalization, Other)
  Sender: FDA-Public Use
  Company Number: US-ELI_LILLY_AND_COMPANY-US200912005342

PATIENT
  Sex: Female

DRUGS (8)
  1. FORTEO [Suspect]
     Indication: OSTEOPOROSIS
     Dosage: UNK, DAILY (1/D)
     Dates: start: 20090701
  2. ORENCIA [Concomitant]
     Dosage: UNK, MONTHLY (1/M)
     Route: 042
  3. TALACEN [Concomitant]
     Dosage: UNK, UNKNOWN
  4. PREDNISONE [Concomitant]
     Dosage: UNK, UNKNOWN
  5. SYNTHROID [Concomitant]
     Dosage: UNK, UNKNOWN
  6. ZANTAC [Concomitant]
     Dosage: UNK, UNKNOWN
  7. GLIMEPIRIDE [Concomitant]
     Dosage: UNK, UNKNOWN
  8. CALCIUM W/VITAMINS NOS [Concomitant]
     Dosage: UNK, UNKNOWN

REACTIONS (3)
  - FALL [None]
  - FIBULA FRACTURE [None]
  - TIBIA FRACTURE [None]
